FAERS Safety Report 9617762 (Version 2)
Quarter: 2014Q1

REPORT INFORMATION
  Report Type: Spontaneous
  Country: JP (occurrence: None)
  Receive Date: 20131009
  Receipt Date: 20140109
  Transmission Date: 20141002
  Serious: Yes (Other)
  Sender: FDA-Public Use
  Company Number: SYM-2013-11314

PATIENT
  Age: 65 Year
  Sex: Male

DRUGS (3)
  1. FLUOROURACIL [Suspect]
     Indication: LIP AND/OR ORAL CAVITY CANCER
     Dates: start: 20130428, end: 20130502
  2. CISPLATIN (CISPLATIN) (CISPLATIN) [Suspect]
     Indication: LIP AND/OR ORAL CAVITY CANCER
     Dates: start: 20130501, end: 20130501
  3. TAXOTERE [Suspect]
     Indication: LIP AND/OR ORAL CAVITY CANCER
     Dosage: 60 MG/M2, INTRAVENOUS (NOT OTHERWISE SPECIFIED)?
     Route: 042
     Dates: start: 20130428, end: 20130428

REACTIONS (4)
  - White blood cell count decreased [None]
  - Disease recurrence [None]
  - Lip and/or oral cavity cancer [None]
  - Recurrent cancer [None]
